FAERS Safety Report 9495484 (Version 3)
Quarter: 2014Q4

REPORT INFORMATION
  Report Type: Spontaneous
  Country: US (occurrence: US)
  Receive Date: 20130903
  Receipt Date: 20141106
  Transmission Date: 20150529
  Serious: Yes (Hospitalization, Other)
  Sender: FDA-Public Use
  Company Number: US-BAYER-2013-105388

PATIENT
  Age: 45 Year
  Sex: Female
  Weight: 77 kg

DRUGS (5)
  1. NEXIUM [Concomitant]
     Active Substance: ESOMEPRAZOLE MAGNESIUM
     Dosage: UNK
     Dates: start: 1990, end: 201302
  2. MEDROXYPROGESTERONE ACETATE. [Concomitant]
     Active Substance: MEDROXYPROGESTERONE ACETATE
     Dosage: UNK
  3. SERTRALINE [Concomitant]
     Active Substance: SERTRALINE HYDROCHLORIDE
     Route: 048
  4. MIRENA [Suspect]
     Active Substance: LEVONORGESTREL
     Indication: CONTRACEPTION
     Dosage: 20 MCG/24HR, CONT
     Route: 015
     Dates: start: 20100630, end: 20100903
  5. VICODIN [Concomitant]
     Active Substance: ACETAMINOPHEN\HYDROCODONE BITARTRATE

REACTIONS (13)
  - Device dislocation [None]
  - Device difficult to use [None]
  - Depression [None]
  - Pelvic pain [None]
  - Abdominal pain [None]
  - Uterine perforation [None]
  - Genital haemorrhage [None]
  - Infection [None]
  - Anxiety [None]
  - Device issue [None]
  - Medical device pain [None]
  - Injury [None]
  - Device dislocation [None]

NARRATIVE: CASE EVENT DATE: 201008
